FAERS Safety Report 9405455 (Version 3)
Quarter: 2013Q3

REPORT INFORMATION
  Report Type: Spontaneous
  Country: US (occurrence: US)
  Receive Date: 20130717
  Receipt Date: 20130814
  Transmission Date: 20140515
  Serious: No
  Sender: FDA-Public Use
  Company Number: US-VERTEX PHARMACEUTICALS INC-2013-007992

PATIENT
  Age: 41 Year
  Sex: Female
  Weight: 72 kg

DRUGS (8)
  1. INCIVEK [Suspect]
     Indication: HEPATITIS C
     Dosage: 750 MG, TID
     Route: 048
     Dates: start: 20130705, end: 20130716
  2. INCIVEK [Suspect]
     Dosage: 750 MG, TID
     Route: 048
     Dates: start: 20130810
  3. RIBAVIRIN [Suspect]
     Indication: HEPATITIS C
     Dosage: 600MG AM, 400MG PM
     Route: 048
     Dates: start: 20130705, end: 20130716
  4. RIBAVIRIN [Suspect]
     Dosage: 600MG AM, 400MG PM
     Dates: start: 20130810
  5. PEGASYS [Suspect]
     Indication: HEPATITIS C
     Dosage: 180 ?G, QW
     Route: 058
     Dates: start: 20130705, end: 20130716
  6. PEGASYS [Suspect]
     Dosage: 180 ?G, QW
     Route: 058
     Dates: start: 20130810
  7. CLARITIN [Concomitant]
     Indication: HYPERSENSITIVITY
     Dosage: UNK, PRN
     Route: 048
  8. CLARITIN [Concomitant]
     Indication: COUGH

REACTIONS (15)
  - Tachycardia [Not Recovered/Not Resolved]
  - Dyspnoea [Recovered/Resolved]
  - Chest discomfort [Not Recovered/Not Resolved]
  - Weight fluctuation [Unknown]
  - Tongue ulceration [Not Recovered/Not Resolved]
  - Glossodynia [Recovered/Resolved]
  - Plicated tongue [Not Recovered/Not Resolved]
  - Oropharyngeal pain [Recovered/Resolved]
  - Swollen tongue [Not Recovered/Not Resolved]
  - Swelling [Recovered/Resolved]
  - Cough [Not Recovered/Not Resolved]
  - Throat irritation [Recovered/Resolved]
  - Ulcer [Recovered/Resolved]
  - Injection site discomfort [Recovered/Resolved]
  - Pruritus generalised [Not Recovered/Not Resolved]
